FAERS Safety Report 26076157 (Version 2)
Quarter: 2025Q4

REPORT INFORMATION
  Report Type: Spontaneous
  Country: US (occurrence: US)
  Receive Date: 20251121
  Receipt Date: 20251202
  Transmission Date: 20260118
  Serious: Yes (Death, Life-Threatening, Hospitalization, Other)
  Sender: PFIZER
  Company Number: US-PFIZER INC-PV202500135617

PATIENT
  Age: 55 Year
  Sex: Female

DRUGS (1)
  1. METHOTREXATE SODIUM [Suspect]
     Active Substance: METHOTREXATE SODIUM
     Indication: Myositis
     Dosage: UNK

REACTIONS (14)
  - Epstein-Barr virus associated lymphoma [Fatal]
  - Malignant neoplasm progression [Fatal]
  - Haemophagocytic lymphohistiocytosis [Fatal]
  - Respiratory failure [Fatal]
  - Lymphoma [Fatal]
  - B-cell lymphoma [Fatal]
  - Pneumonia aspiration [Fatal]
  - Disseminated intravascular coagulation [Fatal]
  - Sepsis [Fatal]
  - Multiple organ dysfunction syndrome [Fatal]
  - Haemodynamic instability [Fatal]
  - Diffuse large B-cell lymphoma [Unknown]
  - Lymphoproliferative disorder [Unknown]
  - Off label use [Unknown]
